FAERS Safety Report 24118605 (Version 3)
Quarter: 2024Q3

REPORT INFORMATION
  Report Type: Spontaneous
  Country: DE (occurrence: DE)
  Receive Date: 20240722
  Receipt Date: 20240923
  Transmission Date: 20241017
  Serious: Yes (Life-Threatening, Hospitalization)
  Sender: PFIZER
  Company Number: DE-PFIZER INC-202400218352

PATIENT
  Sex: Male
  Weight: 60 kg

DRUGS (2)
  1. PAXLOVID [Suspect]
     Active Substance: NIRMATRELVIR\RITONAVIR
     Indication: COVID-19 treatment
     Dosage: [NIRMATRELVIR 300 MG]/[RITONAVIR 100 MG]; 2X/DAY
     Route: 048
     Dates: start: 20231225, end: 20231229
  2. ASPIRIN [Concomitant]
     Active Substance: ASPIRIN
     Indication: Platelet aggregation abnormal
     Dosage: UNK

REACTIONS (8)
  - Pancreatitis [Recovered/Resolved]
  - Lipase increased [Recovered/Resolved]
  - Hepatitis toxic [Recovered/Resolved]
  - Hepatic enzyme increased [Recovered/Resolved]
  - Inflammation [Recovered/Resolved]
  - Laboratory test abnormal [Recovered/Resolved]
  - Abdominal discomfort [Recovered/Resolved]
  - Incorrect product administration duration [Unknown]

NARRATIVE: CASE EVENT DATE: 20231228
